FAERS Safety Report 15937053 (Version 2)
Quarter: 2019Q2

REPORT INFORMATION
  Report Type: Spontaneous
  Country: US (occurrence: US)
  Receive Date: 20190208
  Receipt Date: 20190418
  Transmission Date: 20190711
  Serious: Yes (Other)
  Sender: FDA-Public Use
  Company Number: US-ASTRAZENECA-2018SF25964

PATIENT
  Sex: Female

DRUGS (18)
  1. FERROUS SULFATE. [Concomitant]
     Active Substance: FERROUS SULFATE
  2. CYCLOPHOSPHAMIDE. [Concomitant]
     Active Substance: CYCLOPHOSPHAMIDE
  3. DOCUSATE [Concomitant]
     Active Substance: DOCUSATE
  4. AMLODIPINE [Concomitant]
     Active Substance: AMLODIPINE BESYLATE
  5. PANTOPRAZOLE [Suspect]
     Active Substance: PANTOPRAZOLE
     Route: 065
  6. PREDNISONE. [Concomitant]
     Active Substance: PREDNISONE
  7. TUMS [Concomitant]
     Active Substance: CALCIUM CARBONATE
  8. NEXIUM [Suspect]
     Active Substance: ESOMEPRAZOLE MAGNESIUM
     Route: 048
     Dates: start: 20051004, end: 20101006
  9. PRILOSEC [Suspect]
     Active Substance: OMEPRAZOLE MAGNESIUM
     Dosage: 20.0MG UNKNOWN
     Route: 048
     Dates: start: 20051004, end: 20101006
  10. SYNTHROID [Concomitant]
     Active Substance: LEVOTHYROXINE SODIUM
  11. LASIX [Concomitant]
     Active Substance: FUROSEMIDE
  12. PENTOXIFYLLINE. [Concomitant]
     Active Substance: PENTOXIFYLLINE
  13. PREVACID [Suspect]
     Active Substance: LANSOPRAZOLE
     Route: 065
     Dates: start: 20051004, end: 20101006
  14. ZOCOR [Concomitant]
     Active Substance: SIMVASTATIN
  15. COUMADIN [Concomitant]
     Active Substance: WARFARIN SODIUM
  16. LOPRESSOR [Concomitant]
     Active Substance: METOPROLOL TARTRATE
  17. WARFARIN [Concomitant]
     Active Substance: WARFARIN
  18. METOPROLOL. [Concomitant]
     Active Substance: METOPROLOL

REACTIONS (4)
  - Nephrolithiasis [Unknown]
  - Chronic kidney disease [Unknown]
  - Gastrooesophageal reflux disease [Unknown]
  - Renal failure [Unknown]
